FAERS Safety Report 8498713-8 (Version None)
Quarter: 2012Q3

REPORT INFORMATION
  Report Type: 
  Country: None (occurrence: None)
  Receive Date: 20120709
  Receipt Date: 20120628
  Transmission Date: 20120928
  Serious: No
  Sender: FDA-Public Use
  Company Number: US-AMGEN-USASP2011030156

PATIENT
  Age: 54 Year
  Sex: Female

DRUGS (17)
  1. METHOTREXATE [Concomitant]
     Dosage: 2.5 MG, UNK
  2. AMITIZA [Concomitant]
     Dosage: 24 MUG, BID
  3. ENBREL [Suspect]
     Indication: PSORIASIS
     Dosage: 50 MG, QWK
     Route: 058
     Dates: start: 20110602
  4. MEDROL [Concomitant]
     Dosage: 2 MG, QD
     Route: 048
  5. FOLIC ACID [Concomitant]
     Dosage: 1 MG, QD
     Route: 048
  6. SPIRONOLACTONE [Concomitant]
     Dosage: 25 MG, QD
     Route: 048
  7. GLUCOPHAGE [Concomitant]
     Dosage: 500 MG, QD
     Route: 048
  8. LYRICA [Concomitant]
     Dosage: 150 MG, QD
     Route: 048
  9. METHADONE HCL [Concomitant]
     Dosage: 5 MG, TID
     Route: 048
  10. LORAZEPAM [Concomitant]
     Dosage: 2 MG, QD
     Route: 048
  11. LEXAPRO [Concomitant]
     Dosage: 10 MG, QHS
     Route: 048
  12. ZAROXOLYN [Concomitant]
     Dosage: 5 MG, UNK
  13. NOVOLOG [Concomitant]
  14. LANTUS [Concomitant]
     Dosage: UNK UNK, BID
     Dates: start: 20110602
  15. VITAMIN D [Concomitant]
     Dosage: 50000 IU, QWK
     Route: 048
  16. LIPITOR [Concomitant]
     Dosage: 10 MG, QHS
     Route: 048
  17. ESTRADIOL [Concomitant]
     Dosage: 1 MG, QD
     Route: 048

REACTIONS (6)
  - FEELING HOT [None]
  - INJECTION SITE REACTION [None]
  - INJECTION SITE PAIN [None]
  - SWELLING FACE [None]
  - HYPERHIDROSIS [None]
  - CONTUSION [None]
